FAERS Safety Report 7034237-2 (Version None)
Quarter: 2010Q4

REPORT INFORMATION
  Report Type: 
  Country: None (occurrence: None)
  Receive Date: 20101008
  Receipt Date: 20100930
  Transmission Date: 20110411
  Serious: Yes (Hospitalization)
  Sender: FDA-Public Use
  Company Number: US-BIOGENIDEC-2010BI034104

PATIENT
  Age: 38 Year
  Sex: Female

DRUGS (3)
  1. AVONEX [Suspect]
     Indication: MULTIPLE SCLEROSIS
     Route: 030
  2. AVONEX [Suspect]
     Route: 030
     Dates: start: 19970101
  3. AVONEX [Suspect]
     Route: 030
     Dates: start: 20100101, end: 20100101

REACTIONS (3)
  - BALANCE DISORDER [None]
  - DYSSTASIA [None]
  - MUSCULAR WEAKNESS [None]
